FAERS Safety Report 15841209 (Version 1)
Quarter: 2019Q1

REPORT INFORMATION
  Report Type: Spontaneous
  Country: US (occurrence: US)
  Receive Date: 20190118
  Receipt Date: 20190118
  Transmission Date: 20190417
  Serious: Yes (Hospitalization)
  Sender: FDA-Public Use
  Company Number: US-CIPLA LTD.-2019US00193

PATIENT

DRUGS (2)
  1. BUPROPION. [Suspect]
     Active Substance: BUPROPION
     Dosage: 60 DF, (300 MG TABLETS)
     Route: 048
  2. VILAZODONE [Suspect]
     Active Substance: VILAZODONE
     Dosage: 30 DF, (20 MG TABLETS)
     Route: 048

REACTIONS (5)
  - Memory impairment [Recovering/Resolving]
  - Intentional overdose [Unknown]
  - Serotonin syndrome [Unknown]
  - Partial seizures [Not Recovered/Not Resolved]
  - Cerebral infarction [Unknown]
